FAERS Safety Report 8757623 (Version 2)
Quarter: 2012Q4

REPORT INFORMATION
  Report Type: 
  Country: JP (occurrence: JP)
  Receive Date: 20120828
  Receipt Date: 20121011
  Transmission Date: 20130627
  Serious: Yes (Hospitalization)
  Sender: FDA-Public Use
  Company Number: PHHY2012JP072995

PATIENT
  Age: 78 Year
  Sex: Female

DRUGS (8)
  1. DIOVAN [Suspect]
     Indication: HYPERTENSION
     Dosage: 160 mg (each tablet of 80 mg), daily
     Route: 048
     Dates: end: 20120615
  2. WARFARIN [Suspect]
     Dosage: 2 DF, daily
     Route: 048
     Dates: end: 20120615
  3. TOWAMIN [Suspect]
     Dosage: 37.5 mg, daily
     Route: 048
     Dates: end: 20120615
  4. NOIDOUBLE [Suspect]
     Dosage: 25 mg, daily
     Route: 048
     Dates: end: 20120615
  5. RABEPRAZOLE NA [Concomitant]
     Dosage: 10 mg, UNK
     Route: 048
     Dates: start: 20120614
  6. ALOSITOL [Concomitant]
     Dosage: 200 mg, UNK
     Route: 048
     Dates: start: 20120614
  7. AMLODIPINE [Concomitant]
     Dosage: 1.25 mg, UNK
     Route: 048
     Dates: start: 20120615
  8. FUROSEMIDE [Concomitant]
     Dosage: 60 mg, UNK
     Route: 048
     Dates: start: 20120615

REACTIONS (6)
  - Stevens-Johnson syndrome [Recovering/Resolving]
  - Erythema [Unknown]
  - Pyrexia [Unknown]
  - Ocular hyperaemia [Unknown]
  - Oral mucosa erosion [Unknown]
  - Lip erosion [Unknown]
